FAERS Safety Report 6706148-0 (Version None)
Quarter: 2010Q2

REPORT INFORMATION
  Report Type: 
  Country: None (occurrence: None)
  Receive Date: 20100429
  Receipt Date: 20100426
  Transmission Date: 20101027
  Serious: Yes (Other)
  Sender: FDA-Public Use
  Company Number: 20108629

PATIENT
  Age: 46 Year
  Sex: Male

DRUGS (1)
  1. LIORESAL [Suspect]
     Indication: MUSCLE SPASTICITY
     Dosage: 60 MCG, DAILY, INTRATHECAL
     Route: 037

REACTIONS (2)
  - FLUID RETENTION [None]
  - INTRACRANIAL HYPOTENSION [None]
